FAERS Safety Report 6443565-0 (Version None)
Quarter: 2009Q4

REPORT INFORMATION
  Report Type: 
  Country: None (occurrence: None)
  Receive Date: 20091117
  Receipt Date: 20090714
  Transmission Date: 20100525
  Serious: Yes (Hospitalization)
  Sender: FDA-Public Use
  Company Number: TW-PFIZER INC-2009231847

PATIENT
  Age: 51 Year
  Sex: Male
  Weight: 74.8 kg

DRUGS (12)
  1. SUNITINIB MALATE [Suspect]
     Indication: HEPATIC NEOPLASM MALIGNANT
     Dosage: 37.5 MG, 1X/DAY
     Route: 048
     Dates: start: 20090417, end: 20090622
  2. STILNOX [Concomitant]
     Indication: INSOMNIA
     Dosage: 10 MG, 1X/DAY
     Dates: start: 20090428
  3. ULTRACET [Concomitant]
     Indication: MYALGIA
     Dosage: UNK
     Dates: start: 20090428
  4. ULTRACET [Concomitant]
     Indication: ABDOMINAL PAIN
  5. TRANEXAMIC ACID [Concomitant]
     Indication: EPISTAXIS
     Dosage: 25 MG, 3X/DAY
     Dates: start: 20090428
  6. CIMETIDINE [Concomitant]
     Dosage: 300 MG, 3X/DAY
     Dates: start: 20090512
  7. TOPAAL [Concomitant]
     Dosage: UNK
     Dates: start: 20090512
  8. NORVASC [Concomitant]
     Indication: HYPERTENSION
     Dosage: 5 MG, 1X/DAY
     Dates: start: 20090512
  9. DYPHYLLINE [Concomitant]
     Indication: DYSPNOEA
     Dosage: 100 MG, 3X/DAY
     Dates: start: 20090609
  10. FUROSEMIDE [Concomitant]
     Indication: ASCITES
     Dosage: 40 MG, 1X/DAY
     Dates: start: 20090609
  11. FUSIDIC ACID [Concomitant]
     Dosage: 100 MG, AS NEEDED
     Dates: start: 20090609
  12. DEXAMETHASONE [Concomitant]
     Dosage: UNK ML, UNK
     Dates: start: 20090609

REACTIONS (1)
  - PNEUMONIA [None]
